FAERS Safety Report 7372997-1 (Version None)
Quarter: 2011Q1

REPORT INFORMATION
  Report Type: 
  Country: None (occurrence: None)
  Receive Date: 20110324
  Receipt Date: 20110228
  Transmission Date: 20110831
  Serious: Yes (Hospitalization, Other)
  Sender: FDA-Public Use
  Company Number: US-BAYER-201025501NA

PATIENT
  Sex: Female
  Weight: 56.689 kg

DRUGS (2)
  1. YASMIN [Suspect]
     Indication: ORAL CONTRACEPTION
     Dosage: UNK UNK, QD
     Route: 048
     Dates: start: 20060101, end: 20070101
  2. YASMIN [Suspect]
     Indication: MENSTRUATION IRREGULAR

REACTIONS (3)
  - GALLBLADDER INJURY [None]
  - CHOLECYSTITIS [None]
  - GALLBLADDER NON-FUNCTIONING [None]
